FAERS Safety Report 8003189-0 (Version None)
Quarter: 2011Q4

REPORT INFORMATION
  Report Type: 
  Country: None (occurrence: None)
  Receive Date: 20111222
  Receipt Date: 20111214
  Transmission Date: 20120403
  Serious: Yes (Hospitalization)
  Sender: FDA-Public Use
  Company Number: US-JNJFOC-20111206363

PATIENT
  Sex: Female
  Weight: 48 kg

DRUGS (2)
  1. INFLIXIMAB, RECOMBINANT [Suspect]
     Route: 042
     Dates: start: 20110217
  2. INFLIXIMAB, RECOMBINANT [Suspect]
     Indication: CROHN'S DISEASE
     Route: 042
     Dates: start: 20100119

REACTIONS (8)
  - BACK PAIN [None]
  - JOINT SWELLING [None]
  - JOINT RANGE OF MOTION DECREASED [None]
  - ERYTHEMA [None]
  - CROHN'S DISEASE [None]
  - ARTHRALGIA [None]
  - CHEST PAIN [None]
  - DYSPNOEA [None]
